FAERS Safety Report 6841478-3 (Version None)
Quarter: 2010Q3

REPORT INFORMATION
  Report Type: 
  Country: None (occurrence: None)
  Receive Date: 20100714
  Receipt Date: 20070706
  Transmission Date: 20110219
  Serious: No
  Sender: FDA-Public Use
  Company Number: US-PFIZER INC-2007056627

PATIENT
  Sex: Female
  Weight: 76.2 kg

DRUGS (2)
  1. CHANTIX [Suspect]
     Indication: SMOKING CESSATION THERAPY
     Dates: start: 20070602, end: 20070705
  2. CYMBALTA [Concomitant]

REACTIONS (7)
  - ACTIVITIES OF DAILY LIVING IMPAIRED [None]
  - BACK PAIN [None]
  - CONSTIPATION [None]
  - FATIGUE [None]
  - NAUSEA [None]
  - SLEEP DISORDER [None]
  - URINARY TRACT INFECTION [None]
